FAERS Safety Report 8257140-9 (Version None)
Quarter: 2012Q2

REPORT INFORMATION
  Report Type: 
  Country: None (occurrence: None)
  Receive Date: 20120403
  Receipt Date: 20120326
  Transmission Date: 20120825
  Serious: Yes (Death)
  Sender: FDA-Public Use
  Company Number: US-BAYER-2010-000896

PATIENT
  Age: 32 Year
  Sex: Female
  Weight: 109 kg

DRUGS (6)
  1. MOTRIN [Concomitant]
     Dosage: 600 MG, UNK
  2. YASMIN [Suspect]
     Dosage: UNK
     Route: 048
     Dates: start: 20061101, end: 20061101
  3. ROBAXIN [Concomitant]
     Dosage: 1-2 TABS
  4. PROGESTERONE [Concomitant]
     Dosage: 10 MG
  5. YAZ [Suspect]
     Dosage: UNK
     Dates: start: 20061101, end: 20061101
  6. DARVOCET [Concomitant]

REACTIONS (2)
  - PAIN [None]
  - PULMONARY EMBOLISM [None]
